FAERS Safety Report 18649292 (Version 1)
Quarter: 2020Q4

REPORT INFORMATION
  Report Type: Spontaneous
  Country: US (occurrence: US)
  Receive Date: 20201222
  Receipt Date: 20201222
  Transmission Date: 20210114
  Serious: No
  Sender: FDA-Public Use
  Company Number: US-TEVA-2020-US-1859863

PATIENT
  Age: 82 Year
  Sex: Male

DRUGS (1)
  1. CEPHALEXIN TEVA [Suspect]
     Active Substance: CEPHALEXIN
     Indication: CELLULITIS
     Route: 065

REACTIONS (4)
  - Joint swelling [Not Recovered/Not Resolved]
  - Peripheral swelling [Not Recovered/Not Resolved]
  - Gait disturbance [Not Recovered/Not Resolved]
  - Rash erythematous [Not Recovered/Not Resolved]
